FAERS Safety Report 20997315 (Version 1)
Quarter: 2022Q2

REPORT INFORMATION
  Report Type: Spontaneous
  Country: US (occurrence: None)
  Receive Date: 20220622
  Receipt Date: 20220622
  Transmission Date: 20220721
  Serious: No
  Sender: FDA-Public Use
  Company Number: None

PATIENT
  Age: 84 Year
  Sex: Female

DRUGS (1)
  1. CAPECITABINE [Suspect]
     Active Substance: CAPECITABINE
     Indication: Colon cancer
     Dosage: FREQUENCY : TWICE A DAY;?
     Route: 048
     Dates: start: 202206

REACTIONS (10)
  - Mouth swelling [None]
  - Swollen tongue [None]
  - Oropharyngeal pain [None]
  - Dry mouth [None]
  - Mental impairment [None]
  - Loss of personal independence in daily activities [None]
  - Eye allergy [None]
  - Pain in extremity [None]
  - Hypoaesthesia [None]
  - Fatigue [None]

NARRATIVE: CASE EVENT DATE: 20220615
